FAERS Safety Report 8619174-1 (Version None)
Quarter: 2012Q3

REPORT INFORMATION
  Report Type: 
  Country: None (occurrence: None)
  Receive Date: 20120824
  Receipt Date: 20120812
  Transmission Date: 20120928
  Serious: Yes (Other)
  Sender: FDA-Public Use
  Company Number: US-BAYER-2012-083409

PATIENT
  Age: 77 Year
  Sex: Female
  Weight: 67 kg

DRUGS (4)
  1. ASPIRIN [Suspect]
     Dosage: 1 DF, ONCE
     Route: 048
     Dates: start: 20120812, end: 20120812
  2. BLOOD PRESSURE MEDICATION (NOS) [Concomitant]
  3. ANXIOLYTICS [Concomitant]
  4. ASPIRIN [Concomitant]

REACTIONS (3)
  - HAEMORRHOIDS [None]
  - DIARRHOEA [None]
  - HAEMATOCHEZIA [None]
